FAERS Safety Report 7160585-1 (Version None)
Quarter: 2010Q4

REPORT INFORMATION
  Report Type: 
  Country: None (occurrence: None)
  Receive Date: 20101214
  Receipt Date: 20091127
  Transmission Date: 20110411
  Serious: No
  Sender: FDA-Public Use
  Company Number: US-AMGEN-KDL377234

PATIENT

DRUGS (4)
  1. ENBREL [Suspect]
     Indication: PRODUCT USED FOR UNKNOWN INDICATION
     Dosage: 50 MG, QWK
     Route: 058
  2. PREDNISONE [Concomitant]
     Dosage: 5 MG, UNK
  3. HYDROCODONE BITARTRATE + IBUPROFEN [Concomitant]
     Dosage: UNK UNK, UNK
  4. UNSPECIFIED CONTRACEPTIVE [Concomitant]
     Dosage: UNK UNK, UNK

REACTIONS (9)
  - DIARRHOEA [None]
  - DYSPNOEA [None]
  - FATIGUE [None]
  - HEADACHE [None]
  - IMPAIRED HEALING [None]
  - PAIN [None]
  - PALLOR [None]
  - PURULENT DISCHARGE [None]
  - SKIN ULCER [None]
